FAERS Safety Report 7152293-8 (Version None)
Quarter: 2010Q4

REPORT INFORMATION
  Report Type: 
  Country: None (occurrence: None)
  Receive Date: 20101209
  Receipt Date: 20101209
  Transmission Date: 20110411
  Serious: Yes (Hospitalization)
  Sender: FDA-Public Use
  Company Number: None

PATIENT
  Age: 48 Year
  Sex: Female
  Weight: 25.719 kg

DRUGS (2)
  1. MULTAQ [Suspect]
     Indication: ATRIAL FIBRILLATION
     Dosage: 400MG BID PO
     Route: 048
     Dates: start: 20100713, end: 20101111
  2. MULTAQ [Suspect]
     Indication: ATRIAL FLUTTER
     Dosage: 400MG BID PO
     Route: 048
     Dates: start: 20100713, end: 20101111

REACTIONS (2)
  - DYSPHAGIA [None]
  - DYSPNOEA [None]
